FAERS Safety Report 23975101 (Version 3)
Quarter: 2024Q2

REPORT INFORMATION
  Report Type: Spontaneous
  Country: JP (occurrence: JP)
  Receive Date: 20240614
  Receipt Date: 20240625
  Transmission Date: 20240715
  Serious: Yes (Hospitalization)
  Sender: FDA-Public Use
  Company Number: JP-ARDELYX-2024ARDX004140

PATIENT
  Age: 34 Year
  Sex: Female

DRUGS (9)
  1. TENAPANOR HYDROCHLORIDE [Suspect]
     Active Substance: TENAPANOR HYDROCHLORIDE
     Indication: Blood phosphorus increased
     Dosage: 5 MILLIGRAM, BID
     Route: 048
     Dates: start: 20240413
  2. ASPIRIN [Concomitant]
     Active Substance: ASPIRIN
     Indication: Product used for unknown indication
     Dosage: UNK
     Route: 065
  3. AZILSARTAN KAMEDOXOMIL [Concomitant]
     Active Substance: AZILSARTAN KAMEDOXOMIL
     Indication: Product used for unknown indication
     Dosage: UNK
     Route: 065
  4. CARDENALIN [Concomitant]
     Active Substance: DOXAZOSIN MESYLATE
     Indication: Product used for unknown indication
     Dosage: UNK
     Route: 065
  5. FUROSEMIDE [Concomitant]
     Active Substance: FUROSEMIDE
     Indication: Product used for unknown indication
     Dosage: 20, TABLET
     Route: 065
  6. LISINOPRIL [Concomitant]
     Active Substance: LISINOPRIL
     Indication: Product used for unknown indication
     Dosage: UNK
     Route: 065
  7. NIFEDIPINE CR SANWA [Concomitant]
     Indication: Product used for unknown indication
     Dosage: UNK
     Route: 065
  8. CALCIUM CARBONATE [Concomitant]
     Active Substance: CALCIUM CARBONATE
     Indication: Product used for unknown indication
     Dosage: UNK
     Route: 065
  9. FOSRENOL [Concomitant]
     Active Substance: LANTHANUM CARBONATE
     Indication: Product used for unknown indication
     Dosage: 250, TABLET
     Route: 065

REACTIONS (1)
  - Stress cardiomyopathy [Recovered/Resolved]

NARRATIVE: CASE EVENT DATE: 20240601
